FAERS Safety Report 24105090 (Version 9)
Quarter: 2025Q1

REPORT INFORMATION
  Report Type: Spontaneous
  Country: US (occurrence: US)
  Receive Date: 20240717
  Receipt Date: 20250226
  Transmission Date: 20250409
  Serious: Yes (Hospitalization, Other)
  Sender: SANOFI AVENTIS
  Company Number: US-SA-2023SA403514

PATIENT
  Age: 73 Year
  Sex: Male
  Weight: 61.1 kg

DRUGS (28)
  1. FLOMAX [Suspect]
     Active Substance: TAMSULOSIN HYDROCHLORIDE
     Indication: Benign prostatic hyperplasia
     Dates: start: 20230825
  2. FLOMAX [Suspect]
     Active Substance: TAMSULOSIN HYDROCHLORIDE
     Indication: Urinary retention
  3. OLAPARIB [Suspect]
     Active Substance: OLAPARIB
     Indication: Adenocarcinoma
     Dosage: 600 MG, BID
     Route: 048
     Dates: start: 20230928, end: 20231023
  4. OLAPARIB [Suspect]
     Active Substance: OLAPARIB
     Dosage: 100 MG, BID
     Route: 048
     Dates: start: 20240202, end: 20240218
  5. OLAPARIB [Suspect]
     Active Substance: OLAPARIB
     Dosage: 100 MG, BID
     Route: 048
     Dates: start: 20240219, end: 20240314
  6. OLAPARIB [Suspect]
     Active Substance: OLAPARIB
     Dosage: 100 MG, BID
     Route: 048
     Dates: start: 20240315, end: 20240412
  7. OLAPARIB [Suspect]
     Active Substance: OLAPARIB
     Dosage: 100 MG, BID
     Route: 048
     Dates: start: 20240412, end: 20240425
  8. LIPITOR [Concomitant]
     Active Substance: ATORVASTATIN CALCIUM
     Indication: Hyperlipidaemia
     Dates: start: 20230825
  9. LISINOPRIL [Concomitant]
     Active Substance: LISINOPRIL
     Indication: Essential hypertension
     Dates: start: 20230825
  10. OMNIPAQUE [Concomitant]
     Active Substance: IOHEXOL
     Dates: start: 20230913, end: 20230913
  11. ELIGARD [Concomitant]
     Active Substance: LEUPROLIDE ACETATE
     Dates: start: 202001
  12. ACETAMINOPHEN [Concomitant]
     Active Substance: ACETAMINOPHEN
     Dates: start: 20231013
  13. TEMOVATE [Concomitant]
     Active Substance: CLOBETASOL PROPIONATE
     Indication: Dermatitis acneiform
     Dates: start: 20231110
  14. TEMOVATE [Concomitant]
     Active Substance: CLOBETASOL PROPIONATE
  15. KENALOG [Concomitant]
     Active Substance: TRIAMCINOLONE ACETONIDE
     Indication: Dermatitis acneiform
     Dates: start: 20240119
  16. IBUPROFEN [Concomitant]
     Active Substance: IBUPROFEN
     Indication: Musculoskeletal chest pain
     Dates: start: 20240119
  17. PREDNISONE [Concomitant]
     Active Substance: PREDNISONE
     Indication: Dermatitis acneiform
     Dates: start: 20240223
  18. XARELTO [Concomitant]
     Active Substance: RIVAROXABAN
     Indication: Deep vein thrombosis
     Dosage: 15 MG, BID
     Route: 048
     Dates: start: 20240405
  19. XARELTO [Concomitant]
     Active Substance: RIVAROXABAN
  20. ELIQUIS [Concomitant]
     Active Substance: APIXABAN
     Indication: Deep vein thrombosis
     Dosage: 10 MG, BID
     Route: 048
     Dates: start: 20240405
  21. ELIQUIS [Concomitant]
     Active Substance: APIXABAN
  22. OXYCODONE [Concomitant]
     Active Substance: OXYCODONE
     Indication: Musculoskeletal chest pain
     Dates: start: 20240119
  23. OXYCODONE [Concomitant]
     Active Substance: OXYCODONE
     Indication: Bone pain
  24. TECHNETIUM (99MTC) MEDRONATE [Concomitant]
     Dates: start: 20230913, end: 20230913
  25. TYLENOL [Concomitant]
     Active Substance: ACETAMINOPHEN
     Indication: Back pain
     Dates: start: 20231013
  26. TYLENOL [Concomitant]
     Active Substance: ACETAMINOPHEN
     Indication: Deep vein thrombosis
  27. SODIUM CHLORIDE [Concomitant]
     Active Substance: SODIUM CHLORIDE
     Dates: start: 20231124, end: 20231124
  28. HEPARIN [Concomitant]
     Active Substance: HEPARIN SODIUM
     Indication: Deep vein thrombosis
     Dates: start: 20240514

REACTIONS (3)
  - Anaemia [Not Recovered/Not Resolved]
  - Deep vein thrombosis [Not Recovered/Not Resolved]
  - Humerus fracture [Recovered/Resolved]

NARRATIVE: CASE EVENT DATE: 20231013
